FAERS Safety Report 14820676 (Version 2)
Quarter: 2018Q2

REPORT INFORMATION
  Report Type: Spontaneous
  Country: AT (occurrence: AT)
  Receive Date: 20180427
  Receipt Date: 20180516
  Transmission Date: 20180711
  Serious: No
  Sender: FDA-Public Use
  Company Number: AT-MYLANLABS-2018M1013297

PATIENT
  Age: 60 Year
  Sex: Male

DRUGS (1)
  1. ALLERGODIL NASAL SPRAY [Suspect]
     Active Substance: AZELASTINE HYDROCHLORIDE
     Indication: SEASONAL ALLERGY
     Route: 045

REACTIONS (1)
  - Chest discomfort [Recovered/Resolved]
